FAERS Safety Report 10096287 (Version 1)
Quarter: 2014Q2

REPORT INFORMATION
  Report Type: Spontaneous
  Country: US (occurrence: None)
  Receive Date: 20140410
  Receipt Date: 20140410
  Transmission Date: 20141212
  Serious: Yes (Hospitalization)
  Sender: FDA-Public Use
  Company Number: 2013-001498

PATIENT
  Age: 32 Year
  Sex: Female

DRUGS (6)
  1. LOESTRIN 24 FE (NORETHINDRONE ACETATE ,ETHINYLESTRADIOL, FERROUS FUMARATE) TABLET, 100/20MG [Suspect]
     Indication: CONTRACEPTION
     Dosage: UNK , DAILY, ORAL
     Dates: start: 201203, end: 20120528
  2. LEXAPRO (ESITALOPRAM OXALATE) [Concomitant]
  3. FOLIC ACID (FOLIC ACID) [Concomitant]
  4. METFORMIN (MEFORMIN) [Concomitant]
  5. FLEXERIL (CYCLOBENZAPRIN HYDROCHLORIDE) [Concomitant]
  6. NORCO (HYDROCODONE BITARTRATE, PARACETAMOL) [Concomitant]

REACTIONS (5)
  - Pulmonary fibrosis [None]
  - Painful respiration [None]
  - Dyspnoea [None]
  - Chest pain [None]
  - Pulmonary embolism [None]
